FAERS Safety Report 8405894-0 (Version None)
Quarter: 2012Q2

REPORT INFORMATION
  Report Type: 
  Country: None (occurrence: None)
  Receive Date: 20120604
  Receipt Date: 20120523
  Transmission Date: 20120825
  Serious: Yes (Other)
  Sender: FDA-Public Use
  Company Number: CA-JNJFOC-20120518705

PATIENT
  Sex: Female
  Weight: 68 kg

DRUGS (9)
  1. REMICADE [Suspect]
     Indication: RHEUMATOID ARTHRITIS
     Route: 042
     Dates: start: 20110501
  2. LEVOTHYROXINE SODIUM [Concomitant]
     Route: 065
  3. XALATAN [Concomitant]
     Route: 065
  4. PREDNISONE [Concomitant]
     Route: 065
  5. COMBIZAR [Concomitant]
     Route: 065
  6. PROZAC [Concomitant]
     Route: 065
  7. CRESTOR [Concomitant]
     Route: 065
  8. NEXIUM [Concomitant]
     Route: 065
  9. METHOTREXATE [Concomitant]
     Route: 065

REACTIONS (1)
  - FOOT FRACTURE [None]
